FAERS Safety Report 10154009 (Version 4)
Quarter: 2014Q3

REPORT INFORMATION
  Report Type: Spontaneous
  Country: CA (occurrence: CA)
  Receive Date: 20140506
  Receipt Date: 20140904
  Transmission Date: 20150326
  Serious: Yes (Hospitalization)
  Sender: FDA-Public Use
  Company Number: CA-RANBAXY-2014US-80901

PATIENT
  Age: 93 Year
  Sex: Male

DRUGS (16)
  1. METOPROLOL [Suspect]
     Active Substance: METOPROLOL
     Dosage: DOSE DECREASED TO 12.5 MG, QD
     Route: 065
  2. TAMSULOSIN CR [Concomitant]
     Active Substance: TAMSULOSIN
     Indication: NOCTURIA
     Dosage: 0.4 MG, QD; AT BEDTIME
     Route: 065
  3. PREDNISONE (NGX) (PREDNISONE) UNKNOWN [Suspect]
     Active Substance: PREDNISONE
     Indication: PEMPHIGOID
     Dosage: DOSE DECREASED TO 7.5 MG, QD
     Route: 065
  4. PREDNISONE (NGX) (PREDNISONE) UNKNOWN [Suspect]
     Active Substance: PREDNISONE
     Indication: PEMPHIGOID
     Dosage: DOSE INCREASED TO 5 MG, BID
     Route: 065
  5. TELMISARTAN (NGX) [Suspect]
     Active Substance: TELMISARTAN
     Dosage: DOSE DECREASED TO 20 MG, QD
     Route: 065
  6. METOPROLOL [Suspect]
     Active Substance: METOPROLOL
     Indication: MYOCARDIAL INFARCTION
     Dosage: 12.5 MG, QD
     Route: 065
  7. LORAZEPAM (NGX) (LORAZEPAM) UNKNOWN [Suspect]
     Active Substance: LORAZEPAM
     Indication: INSOMNIA
     Dosage: 0.25 MG
     Route: 065
  8. TELMISARTAN (NGX) [Suspect]
     Active Substance: TELMISARTAN
     Indication: MYOCARDIAL INFARCTION
     Dosage: 20 MG, QD
     Route: 065
  9. PANTOPRAZOLE [Suspect]
     Active Substance: PANTOPRAZOLE SODIUM
     Indication: GASTROINTESTINAL HAEMORRHAGE
     Dosage: 40 MG, BID
     Route: 065
  10. ESCITALOPRAM [Suspect]
     Active Substance: ESCITALOPRAM OXALATE
     Indication: DEPRESSION
     Dosage: DOSE DECREASED TO 5 MG, QD
     Route: 065
  11. METOPROLOL [Suspect]
     Active Substance: METOPROLOL
     Indication: MYOCARDIAL INFARCTION
     Dosage: DOSE DECREASED TO 25 MG, QD
     Route: 065
  12. LOPERAMIDE [Concomitant]
     Active Substance: LOPERAMIDE
     Indication: DIARRHOEA
     Dosage: 1 MG, PRN
     Route: 065
  13. TELMISARTAN (NGX) [Suspect]
     Active Substance: TELMISARTAN
     Indication: MYOCARDIAL INFARCTION
     Dosage: DOSE DECREASED TO 40 MG, QD
     Route: 065
  14. LORAZEPAM (NGX) (LORAZEPAM) UNKNOWN [Suspect]
     Active Substance: LORAZEPAM
     Dosage: 0.5 MG; DOSE DECREASED TO 0.25 MG
     Route: 065
  15. ESCITALOPRAM [Suspect]
     Active Substance: ESCITALOPRAM OXALATE
     Indication: DEPRESSION
     Dosage: 5 MG, QD
     Route: 065
  16. LORAZEPAM (NGX) (LORAZEPAM) UNKNOWN [Suspect]
     Active Substance: LORAZEPAM
     Indication: INSOMNIA
     Dosage: 1 MG AT BEDTIME; DOSE DECREASED TO 0.5 MG
     Route: 065

REACTIONS (11)
  - Hyponatraemia [Unknown]
  - Poor quality sleep [Unknown]
  - Vitamin B12 deficiency [None]
  - Diarrhoea [Recovered/Resolved]
  - Dizziness [Recovered/Resolved]
  - Fall [Recovered/Resolved]
  - Osteoporosis [Unknown]
  - Off label use [None]
  - Vitamin D deficiency [None]
  - Orthostatic hypotension [Recovering/Resolving]
  - Fatigue [Recovering/Resolving]
